FAERS Safety Report 6085727-0 (Version None)
Quarter: 2009Q1

REPORT INFORMATION
  Report Type: 
  Country: None (occurrence: None)
  Receive Date: 20090220
  Receipt Date: 20090212
  Transmission Date: 20090719
  Serious: Yes (Other)
  Sender: FDA-Public Use
  Company Number: PHEH2009US01710

PATIENT
  Sex: Female

DRUGS (6)
  1. RECLAST [Suspect]
     Dosage: UNK
     Dates: start: 20080914, end: 20080914
  2. SINGULAIR [Concomitant]
  3. RANITIDINE [Concomitant]
  4. OMEPRAZOLE [Concomitant]
  5. CALCIUM W/VITAMIN D NOS [Concomitant]
  6. ADVAIR DISKUS 100/50 [Concomitant]

REACTIONS (5)
  - ABASIA [None]
  - ARTHRALGIA [None]
  - INFLUENZA LIKE ILLNESS [None]
  - PAIN [None]
  - QUALITY OF LIFE DECREASED [None]
